FAERS Safety Report 15416044 (Version 1)
Quarter: 2018Q3

REPORT INFORMATION
  Report Type: Spontaneous
  Country: US (occurrence: US)
  Receive Date: 20180923
  Receipt Date: 20180923
  Transmission Date: 20181010
  Serious: Yes (Other)
  Sender: FDA-Public Use
  Company Number: US-STRIDES ARCOLAB LIMITED-2018SP005094

PATIENT

DRUGS (5)
  1. DIAZEPAM. [Concomitant]
     Active Substance: DIAZEPAM
     Indication: STATUS EPILEPTICUS
     Route: 065
  2. LAMOTRIGINE. [Concomitant]
     Active Substance: LAMOTRIGINE
     Indication: STATUS EPILEPTICUS
     Dosage: UNK
     Route: 065
  3. CLOBAZAM [Concomitant]
     Active Substance: CLOBAZAM
     Indication: STATUS EPILEPTICUS
     Dosage: UNK
     Route: 065
  4. IMMUNOGLOBULIN                     /00025201/ [Concomitant]
     Active Substance: HUMAN IMMUNOGLOBULIN G
     Indication: STATUS EPILEPTICUS
     Route: 042
  5. AMANTADINE HYDROCHLORIDE. [Suspect]
     Active Substance: AMANTADINE HYDROCHLORIDE
     Indication: STATUS EPILEPTICUS
     Dosage: PEAK DOSE OF 200 MG PER DAY
     Route: 065

REACTIONS (1)
  - Drug ineffective for unapproved indication [Unknown]
